FAERS Safety Report 15121561 (Version 1)
Quarter: 2018Q3

REPORT INFORMATION
  Report Type: Spontaneous
  Country: US (occurrence: US)
  Receive Date: 20180613
  Receipt Date: 20180613
  Transmission Date: 20181010
  Serious: Yes (Other)
  Sender: FDA-Public Use
  Company Number: None

PATIENT
  Age: 71 Year
  Sex: Male
  Weight: 73.35 kg

DRUGS (11)
  1. LISINOPRIL. [Concomitant]
     Active Substance: LISINOPRIL
  2. VITAMIN C [Concomitant]
     Active Substance: ASCORBIC ACID
  3. SOLCO HEALTHCARE CLONAZEPAM 0.5MG NDC 45347?0406?10 [Suspect]
     Active Substance: CLONAZEPAM
     Indication: GENERALISED ANXIETY DISORDER
     Route: 048
     Dates: start: 20180528, end: 20180611
  4. FOLATE [Concomitant]
     Active Substance: FOLATE SODIUM
  5. NIFEDIPINE. [Concomitant]
     Active Substance: NIFEDIPINE
  6. ELIQUIS [Concomitant]
     Active Substance: APIXABAN
  7. MULTIVITAMIN [Concomitant]
     Active Substance: VITAMINS
  8. POTASSIUM [Concomitant]
     Active Substance: POTASSIUM
  9. NIZATIDINE. [Concomitant]
     Active Substance: NIZATIDINE
  10. KLONOPIN [Concomitant]
     Active Substance: CLONAZEPAM
  11. ELAVIL [Concomitant]
     Active Substance: AMITRIPTYLINE HYDROCHLORIDE

REACTIONS (5)
  - Withdrawal syndrome [None]
  - Drug ineffective [None]
  - Palpitations [None]
  - Product substitution issue [None]
  - Blood pressure increased [None]

NARRATIVE: CASE EVENT DATE: 20180611
